FAERS Safety Report 9494964 (Version 4)
Quarter: 2013Q4

REPORT INFORMATION
  Report Type: Report from Study
  Country: BR (occurrence: BR)
  Receive Date: 20130903
  Receipt Date: 20131017
  Transmission Date: 20140711
  Serious: Yes (Hospitalization)
  Sender: FDA-Public Use
  Company Number: PHHY2013BR092986

PATIENT
  Age: 43 Year
  Sex: Female
  Weight: 75 kg

DRUGS (7)
  1. FORASEQ [Suspect]
     Indication: BRONCHITIS
     Dosage: 1 DF, Q8H (ONE CAPSULE OF TREATMENT ONE MORE ONE CAPSULE OF TREATMENT 2 )
     Dates: start: 2012
  2. FORASEQ [Suspect]
     Dosage: 1 DF, Q12H (ONE CAPSULE OF TREATMENT ONE MORE ONE CAPSULE OF TREATMENT 2)
  3. RIVOTRIL [Concomitant]
     Indication: SLEEP DISORDER
     Dosage: 2 MG, 1 TABLET AT NIGHT
     Route: 048
  4. BEROTEC [Concomitant]
     Indication: BRONCHITIS
     Dosage: 5 DRP, 1 INHALATION PER DAY
     Dates: start: 2000
  5. BEROTEC [Concomitant]
     Dosage: 4 DRP, UNK
  6. ATROVENT [Concomitant]
     Indication: BRONCHITIS
     Dosage: 20 DRP, 1 INHALATION PER DAY
     Dates: start: 2000
  7. ATROVENT [Concomitant]
     Dosage: 20 DRP, UNK

REACTIONS (11)
  - Pneumonia [Unknown]
  - Pyrexia [Unknown]
  - Bronchitis [Not Recovered/Not Resolved]
  - Osteoarthritis [Not Recovered/Not Resolved]
  - Vessel puncture site bruise [Recovering/Resolving]
  - Incorrect dose administered [Unknown]
  - Fatigue [Not Recovered/Not Resolved]
  - Dyspnoea [Unknown]
  - Bronchitis chronic [Unknown]
  - Insomnia [Not Recovered/Not Resolved]
  - Dysphonia [Not Recovered/Not Resolved]
